FAERS Safety Report 6193562-8 (Version None)
Quarter: 2009Q2

REPORT INFORMATION
  Report Type: 
  Country: None (occurrence: None)
  Receive Date: 20090518
  Receipt Date: 20090506
  Transmission Date: 20091009
  Serious: Yes (Life-Threatening, Hospitalization)
  Sender: FDA-Public Use
  Company Number: GH-MERCK-0904USA00915

PATIENT
  Age: 8 Year
  Sex: Female

DRUGS (2)
  1. STROMECTOL [Suspect]
     Indication: ONCHOCERCIASIS
     Route: 048
     Dates: start: 20081201
  2. ALBENDAZOLE [Suspect]
     Route: 065
     Dates: start: 20081201

REACTIONS (8)
  - DERMATITIS BULLOUS [None]
  - EYE DISCHARGE [None]
  - EYE HAEMORRHAGE [None]
  - EYE SWELLING [None]
  - RASH PAPULAR [None]
  - STEVENS-JOHNSON SYNDROME [None]
  - SWELLING FACE [None]
  - TOXIC EPIDERMAL NECROLYSIS [None]
